FAERS Safety Report 5132045-0 (Version None)
Quarter: 2006Q4

REPORT INFORMATION
  Report Type: 
  Country: None (occurrence: None)
  Receive Date: 20061017
  Receipt Date: 20061004
  Transmission Date: 20070319
  Serious: Yes (Hospitalization, Other)
  Sender: FDA-Public Use
  Company Number: 2006123413

PATIENT
  Age: 42 Year
  Sex: Female
  Weight: 56.6996 kg

DRUGS (1)
  1. BEXTRA [Suspect]
     Dosage: 10 MG
     Dates: end: 20041113

REACTIONS (1)
  - CEREBROVASCULAR ACCIDENT [None]
